FAERS Safety Report 6923882-8 (Version None)
Quarter: 2010Q3

REPORT INFORMATION
  Report Type: 
  Country: None (occurrence: None)
  Receive Date: 20100813
  Receipt Date: 20100316
  Transmission Date: 20110219
  Serious: No
  Sender: FDA-Public Use
  Company Number: US-BRISTOL-MYERS SQUIBB COMPANY-15021066

PATIENT
  Sex: Male

DRUGS (3)
  1. REYATAZ [Suspect]
  2. ZERIT [Suspect]
  3. ATRIPLA [Suspect]

REACTIONS (1)
  - BURNING SENSATION [None]
